FAERS Safety Report 19321695 (Version 2)
Quarter: 2025Q1

REPORT INFORMATION
  Report Type: Spontaneous
  Country: US (occurrence: US)
  Receive Date: 20210528
  Receipt Date: 20250313
  Transmission Date: 20250409
  Serious: No
  Sender: TEVA
  Company Number: US-TEVA-2021-US-1910442

PATIENT
  Age: 66 Year
  Sex: Female

DRUGS (3)
  1. AJOVY [Suspect]
     Active Substance: FREMANEZUMAB-VFRM
     Indication: Product used for unknown indication
     Dosage: 225 MG MONTHLY
     Route: 065
  2. AJOVY [Suspect]
     Active Substance: FREMANEZUMAB-VFRM
  3. MODERNA COVID-19 VACCINE [Suspect]
     Active Substance: ELASOMERAN
     Indication: Product used for unknown indication
     Route: 065

REACTIONS (2)
  - Illness [Unknown]
  - Headache [Not Recovered/Not Resolved]
